FAERS Safety Report 9903766 (Version 2)
Quarter: 2014Q1

REPORT INFORMATION
  Report Type: Report from Study
  Country: BR (occurrence: BR)
  Receive Date: 20140218
  Receipt Date: 20140218
  Transmission Date: 20141002
  Serious: Yes (Other)
  Sender: FDA-Public Use
  Company Number: BR-ROCHE-1015830

PATIENT
  Age: 55 Year
  Sex: Female
  Weight: 53 kg

DRUGS (10)
  1. MABTHERA [Suspect]
     Indication: SYSTEMIC LUPUS ERYTHEMATOSUS
     Route: 065
     Dates: start: 20080601
  2. MABTHERA [Suspect]
     Indication: RHEUMATOID ARTHRITIS
     Route: 065
     Dates: start: 200909
  3. MABTHERA [Suspect]
     Route: 065
     Dates: start: 201008
  4. MABTHERA [Suspect]
     Route: 065
     Dates: start: 201106
  5. PREDNISONE [Concomitant]
     Indication: PREMEDICATION
     Route: 065
  6. FLUOXETIN [Concomitant]
     Route: 065
  7. RITALIN [Concomitant]
     Route: 065
  8. YEAST [Concomitant]
     Route: 065
  9. METICORTEN [Concomitant]
     Indication: PAIN
  10. ENALAPRIL [Concomitant]

REACTIONS (8)
  - Nasal neoplasm [Recovered/Resolved]
  - Local swelling [Not Recovered/Not Resolved]
  - Erythema [Not Recovered/Not Resolved]
  - Pain in extremity [Not Recovered/Not Resolved]
  - Pyrexia [Recovered/Resolved]
  - Malaise [Recovered/Resolved]
  - Hypotension [Recovered/Resolved]
  - Nausea [Recovered/Resolved]
